FAERS Safety Report 6547812-6 (Version None)
Quarter: 2010Q1

REPORT INFORMATION
  Report Type: 
  Country: None (occurrence: None)
  Receive Date: 20100124
  Receipt Date: 20091019
  Transmission Date: 20100710
  Serious: No
  Sender: FDA-Public Use
  Company Number: US-ALEXION-A200900858

PATIENT
  Sex: Female
  Weight: 51.4 kg

DRUGS (3)
  1. SOLIRIS [Suspect]
     Indication: PAROXYSMAL NOCTURNAL HAEMOGLOBINURIA
     Dosage: 600 MG, Q 7 DAYS X 5 WEEKS AND THEN EVERY OTHER WEEK
     Route: 042
     Dates: start: 20091009
  2. IMITREX                            /01044801/ [Concomitant]
     Dosage: 50 MG 1 TAB REPEAT Q 2 HRS, PRN
     Route: 048
     Dates: start: 20090617
  3. MACROBID                           /00024401/ [Concomitant]
     Dosage: 100 MG, TWICE WEEKLY PRN
     Route: 048

REACTIONS (1)
  - HEADACHE [None]
